FAERS Safety Report 19862583 (Version 1)
Quarter: 2021Q3

REPORT INFORMATION
  Report Type: Spontaneous
  Country: US (occurrence: US)
  Receive Date: 20210921
  Receipt Date: 20210921
  Transmission Date: 20211014
  Serious: No
  Sender: FDA-Public Use
  Company Number: US-GW PHARMA-202109USGW04476

PATIENT

DRUGS (1)
  1. EPIDIOLEX [Suspect]
     Active Substance: CANNABIDIOL
     Indication: LENNOX-GASTAUT SYNDROME
     Dosage: 900 MILLIGRAM
     Route: 048
     Dates: start: 20200602

REACTIONS (4)
  - Seizure [Unknown]
  - Product taste abnormal [Unknown]
  - Product colour issue [Unknown]
  - Drug ineffective [Unknown]
